FAERS Safety Report 21694470 (Version 1)
Quarter: 2022Q4

REPORT INFORMATION
  Report Type: Spontaneous
  Country: US (occurrence: US)
  Receive Date: 20221207
  Receipt Date: 20221207
  Transmission Date: 20230112
  Serious: No
  Sender: FDA-Public Use
  Company Number: US-SIGMAPHARM LABORATORIES, LLC-2022SIG00010

PATIENT
  Age: 58 Year
  Sex: Female

DRUGS (2)
  1. LIOTHYRONINE SODIUM [Suspect]
     Active Substance: LIOTHYRONINE SODIUM
     Dosage: 5 ?G, 1X/DAY
     Dates: start: 202202, end: 202202
  2. LIOTHYRONINE SODIUM [Suspect]
     Active Substance: LIOTHYRONINE SODIUM
     Dosage: 2.5 ?G, 2X/DAY
     Dates: start: 202202, end: 202202

REACTIONS (4)
  - Constipation [Recovered/Resolved]
  - Anxiety [Recovered/Resolved]
  - Off label use [Recovered/Resolved]
  - Reaction to excipient [Recovered/Resolved]

NARRATIVE: CASE EVENT DATE: 20220201
